FAERS Safety Report 11012153 (Version 1)
Quarter: 2015Q2

REPORT INFORMATION
  Report Type: Spontaneous
  Country: US (occurrence: US)
  Receive Date: 20150410
  Receipt Date: 20150410
  Transmission Date: 20150821
  Serious: Yes (Hospitalization)
  Sender: FDA-Public Use
  Company Number: US-FRI-1000075729

PATIENT
  Sex: Female
  Weight: 71.12 kg

DRUGS (17)
  1. KEFLEX [Concomitant]
     Active Substance: CEPHALEXIN
     Dosage: 750MG
     Route: 048
     Dates: start: 20150228
  2. ATIVAN [Concomitant]
     Active Substance: LORAZEPAM
     Dosage: 3MG
     Route: 048
     Dates: start: 20141201
  3. NORCO [Concomitant]
     Active Substance: ACETAMINOPHEN\HYDROCODONE BITARTRATE
     Indication: PAIN
     Dates: start: 20150225
  4. FUROSEMIDE. [Concomitant]
     Active Substance: FUROSEMIDE
     Indication: OEDEMA
     Dosage: 20 MG
     Route: 048
     Dates: start: 20141126
  5. LYRICA [Suspect]
     Active Substance: PREGABALIN
     Indication: INTERVERTEBRAL DISC DISORDER
  6. LISINOPRIL. [Concomitant]
     Active Substance: LISINOPRIL
     Indication: HYPERTENSION
     Dosage: 40MG
     Route: 048
     Dates: start: 20141126
  7. LYRICA [Suspect]
     Active Substance: PREGABALIN
     Indication: RADICULOPATHY
  8. LYRICA [Suspect]
     Active Substance: PREGABALIN
     Indication: PAIN
     Dosage: 225MG
     Route: 048
     Dates: start: 20150205, end: 20150309
  9. DESYREL [Concomitant]
     Active Substance: TRAZODONE HYDROCHLORIDE
     Indication: MAJOR DEPRESSION
     Dosage: 100MG
     Route: 048
     Dates: start: 20141126
  10. VITAMIN D3 [Concomitant]
     Active Substance: CHOLECALCIFEROL
     Dosage: 1000 UNITS
     Route: 048
     Dates: start: 20140213
  11. LYRICA [Suspect]
     Active Substance: PREGABALIN
     Indication: PAIN IN EXTREMITY
  12. LYRICA [Suspect]
     Active Substance: PREGABALIN
     Indication: BACK PAIN
  13. ASPIRIN. [Concomitant]
     Active Substance: ASPIRIN
     Route: 048
     Dates: start: 20130502
  14. FLEXERIL [Concomitant]
     Active Substance: CYCLOBENZAPRINE HYDROCHLORIDE
     Route: 048
     Dates: start: 20141126
  15. CELEXA [Suspect]
     Active Substance: CITALOPRAM HYDROBROMIDE
     Indication: DEPRESSION
     Dosage: 40MG
     Route: 048
     Dates: start: 20141126
  16. K-DUR [Concomitant]
     Active Substance: POTASSIUM CHLORIDE
     Indication: HYPERTENSION
     Dosage: 20 MIEQ
     Route: 048
     Dates: start: 20141126
  17. OSCAL-500 [Concomitant]
     Dosage: 1000-800 MG-UNIT
     Route: 048
     Dates: start: 20140213

REACTIONS (2)
  - Syncope [Unknown]
  - Loss of consciousness [Unknown]
